FAERS Safety Report 9199951 (Version 2)
Quarter: 2013Q3

REPORT INFORMATION
  Report Type: Spontaneous
  Country: JP (occurrence: JP)
  Receive Date: 20130329
  Receipt Date: 20130702
  Transmission Date: 20140515
  Serious: Yes (Other)
  Sender: FDA-Public Use
  Company Number: JP-SANOFI-AVENTIS-2013SA030968

PATIENT
  Age: 70 Year
  Sex: Female
  Weight: 44 kg

DRUGS (14)
  1. ELPLAT [Suspect]
     Indication: RECTAL CANCER
     Route: 041
     Dates: start: 20130130, end: 20130130
  2. 5-FU [Suspect]
     Indication: RECTAL CANCER
     Route: 040
     Dates: start: 20130130, end: 20130130
  3. 5-FU [Suspect]
     Indication: RECTAL CANCER
     Dosage: FREQUENCY:ONCE IN 2 DAYS
     Route: 041
     Dates: start: 20130130, end: 20130130
  4. ERBITUX [Suspect]
     Indication: COLON CANCER
     Route: 041
     Dates: start: 20130130, end: 20130130
  5. CALCIUM LEVOFOLINATE [Concomitant]
     Dates: start: 20130130, end: 20130130
  6. GRANISETRON [Concomitant]
     Dates: start: 20130130, end: 20130130
  7. DEXART [Concomitant]
     Dates: start: 20130130, end: 20130130
  8. CHLOR-TRIMETON [Concomitant]
     Dates: start: 20130130, end: 20130130
  9. PRIMPERAN [Concomitant]
     Dates: start: 20130131, end: 20130131
  10. FLAVITAN [Concomitant]
     Dates: start: 20130131, end: 20130202
  11. VITAMIN C [Concomitant]
     Dates: start: 20130131, end: 20130202
  12. GASTER [Concomitant]
     Dates: start: 20130131, end: 20130202
  13. SOLDEM 3A [Concomitant]
     Dates: start: 20130131, end: 20130204
  14. NEOLAMIN MULTI V [Concomitant]
     Dates: start: 20130204, end: 20130207

REACTIONS (3)
  - Depressed level of consciousness [Recovering/Resolving]
  - Stress cardiomyopathy [Recovered/Resolved]
  - Nausea [Unknown]
